FAERS Safety Report 13457314 (Version 1)
Quarter: 2017Q2

REPORT INFORMATION
  Report Type: Spontaneous
  Country: None (occurrence: US)
  Receive Date: 20170418
  Receipt Date: 20170418
  Transmission Date: 20170830
  Serious: Yes (Disabling)
  Sender: FDA-Public Use
  Company Number: None

PATIENT
  Age: 53 Year
  Sex: Female
  Weight: 69 kg

DRUGS (4)
  1. MULTI VITAMINES [Concomitant]
  2. CALCIUM [Concomitant]
     Active Substance: CALCIUM
  3. PANTOPRAZOLE [Suspect]
     Active Substance: PANTOPRAZOLE
     Indication: DYSPEPSIA
  4. FISH OIL [Concomitant]
     Active Substance: FISH OIL

REACTIONS (11)
  - Gamma-glutamyltransferase increased [None]
  - Vision blurred [None]
  - Headache [None]
  - Arthralgia [None]
  - Transaminases increased [None]
  - Herpes zoster [None]
  - Fatigue [None]
  - Chest pain [None]
  - Visual acuity reduced [None]
  - Tinnitus [None]
  - Depression [None]

NARRATIVE: CASE EVENT DATE: 20160708
